FAERS Safety Report 18157135 (Version 4)
Quarter: 2021Q2

REPORT INFORMATION
  Report Type: Spontaneous
  Country: AM (occurrence: AM)
  Receive Date: 20200817
  Receipt Date: 20210506
  Transmission Date: 20210717
  Serious: Yes (Death, Other)
  Sender: FDA-Public Use
  Company Number: AM-ROCHE-2658135

PATIENT
  Age: 39 Year
  Sex: Female

DRUGS (10)
  1. TECENTRIQ [Suspect]
     Active Substance: ATEZOLIZUMAB
     Indication: ADENOCARCINOMA
     Dosage: 2 CYCLES
     Route: 042
     Dates: start: 201905, end: 201906
  2. TARCEVA [Suspect]
     Active Substance: ERLOTINIB HYDROCHLORIDE
     Indication: METASTASIS
  3. AVASTIN [Suspect]
     Active Substance: BEVACIZUMAB
     Indication: ADENOCARCINOMA
     Route: 042
     Dates: start: 201905, end: 201906
  4. PACLITAXEL. [Suspect]
     Active Substance: PACLITAXEL
     Indication: METASTASIS
  5. TECENTRIQ [Suspect]
     Active Substance: ATEZOLIZUMAB
     Indication: METASTASIS
  6. CARBOPLATIN. [Suspect]
     Active Substance: CARBOPLATIN
     Indication: ADENOCARCINOMA
     Dosage: 2 CYCLES
     Route: 065
     Dates: start: 201905, end: 201906
  7. AVASTIN [Suspect]
     Active Substance: BEVACIZUMAB
     Indication: METASTASIS
  8. TARCEVA [Suspect]
     Active Substance: ERLOTINIB HYDROCHLORIDE
     Indication: ADENOCARCINOMA
     Dosage: 1 MONTH
     Route: 065
     Dates: start: 202002, end: 202003
  9. PACLITAXEL. [Suspect]
     Active Substance: PACLITAXEL
     Indication: ADENOCARCINOMA
     Dosage: 2 CYCLES
     Route: 065
     Dates: start: 201905, end: 201906
  10. CARBOPLATIN. [Suspect]
     Active Substance: CARBOPLATIN
     Indication: METASTASIS

REACTIONS (6)
  - Thrombocytopenia [Recovered/Resolved]
  - Urticaria [Recovered/Resolved]
  - Toxicity to various agents [Fatal]
  - Pulmonary embolism [Recovered/Resolved]
  - Pneumothorax [Recovered/Resolved]
  - Cardiopulmonary failure [Fatal]

NARRATIVE: CASE EVENT DATE: 201906
